FAERS Safety Report 10015020 (Version 1)
Quarter: 2014Q1

REPORT INFORMATION
  Report Type: Spontaneous
  Country: ES (occurrence: ES)
  Receive Date: 20140317
  Receipt Date: 20140317
  Transmission Date: 20141002
  Serious: Yes (Hospitalization)
  Sender: FDA-Public Use
  Company Number: ES-BAYER-2014-034009

PATIENT
  Age: 66 Year
  Sex: Female

DRUGS (5)
  1. ACTIRA [Suspect]
     Indication: BRONCHITIS
     Dosage: 400 MG, UNK
     Dates: start: 20120123, end: 20120125
  2. SINTROM [Concomitant]
  3. AMIODARONE [Concomitant]
     Dosage: 200 MG, UNK
  4. CARVEDILOL [Concomitant]
     Dosage: 25 UNK, UNK
  5. IRBESARTAN [Concomitant]
     Dosage: 150 MG, UNK

REACTIONS (6)
  - Neurotoxicity [Recovering/Resolving]
  - Paraesthesia [Recovering/Resolving]
  - Dizziness [Recovering/Resolving]
  - Nausea [Recovered/Resolved]
  - Vomiting [Recovered/Resolved]
  - Nervousness [Recovered/Resolved]
